FAERS Safety Report 22361853 (Version 1)
Quarter: 2023Q2

REPORT INFORMATION
  Report Type: Spontaneous
  Country: KR (occurrence: None)
  Receive Date: 20230524
  Receipt Date: 20230524
  Transmission Date: 20230721
  Serious: Yes (Other)
  Sender: FDA-Public Use
  Company Number: 2023A114118

PATIENT
  Age: 72 Year
  Sex: Female

DRUGS (3)
  1. GEFITINIB [Suspect]
     Active Substance: GEFITINIB
     Indication: Adenosquamous cell lung cancer
     Route: 048
  2. OSIMERTINIB [Concomitant]
     Active Substance: OSIMERTINIB
  3. UNSPECIFIED INGREDIENT [Concomitant]
     Active Substance: UNSPECIFIED INGREDIENT

REACTIONS (4)
  - Splenic infarction [Unknown]
  - Condition aggravated [Unknown]
  - Metastases to lung [Unknown]
  - Metastases to liver [Unknown]
